FAERS Safety Report 4507598-3 (Version None)
Quarter: 2004Q4

REPORT INFORMATION
  Report Type: 
  Country: None (occurrence: None)
  Receive Date: 20041112
  Receipt Date: 20041022
  Transmission Date: 20050328
  Serious: Yes (Other)
  Sender: FDA-Public Use
  Company Number: WAES 0411USA00716

PATIENT
  Age: 64 Year
  Sex: Female

DRUGS (16)
  1. DECADRON [Suspect]
     Indication: PROPHYLAXIS
     Dosage: PO
     Route: 048
     Dates: start: 20040211, end: 20040211
  2. DECADRON [Suspect]
     Indication: PROPHYLAXIS OF NAUSEA AND VOMITING
     Dosage: 20 MG/ 1X/ PO
     Route: 048
     Dates: start: 20040212, end: 20040212
  3. DECADRON [Suspect]
     Indication: PROPHYLAXIS OF NAUSEA AND VOMITING
     Dosage: 8 MG/ AM/ PO
     Route: 048
     Dates: start: 20040213, end: 20040215
  4. PLACEBO [Suspect]
     Indication: PROPHYLAXIS OF NAUSEA AND VOMITING
     Dosage: PO
     Route: 048
     Dates: start: 20040212, end: 20040214
  5. DEXAMETHASONE [Suspect]
     Indication: PROPHYLAXIS OF NAUSEA AND VOMITING
     Dosage: 8 MG/ HS/ PO
     Route: 048
     Dates: start: 20040213, end: 20040215
  6. ONDANSETRON [Suspect]
     Indication: PROPHYLAXIS OF NAUSEA AND VOMITING
     Dosage: 8 MG/ BID/ PO
     Route: 048
     Dates: start: 20040213, end: 20040215
  7. CISPLATIN [Suspect]
     Indication: FALLOPIAN TUBE CANCER
     Dosage: IV
     Route: 042
     Dates: start: 20040212, end: 20040212
  8. DOCETAXEL [Suspect]
     Indication: FALLOPIAN TUBE CANCER
     Dates: start: 20040212, end: 20040212
  9. ONDANSETRON [Suspect]
     Indication: PROPHYLAXIS OF NAUSEA AND VOMITING
     Dosage: 32 MG/ 1X/ IV
     Route: 042
     Dates: start: 20040212, end: 20040212
  10. FUROSEMIDE [Concomitant]
  11. LACTULOSE [Concomitant]
  12. METOPROLOL SUCCINATE [Concomitant]
  13. MIRTAZAPINE [Concomitant]
  14. NADROPARIN [Concomitant]
  15. OXAZEPAM [Concomitant]
  16. POLYETHYLENE GLYCOL [Concomitant]

REACTIONS (8)
  - CARDIAC ARREST [None]
  - DUODENITIS [None]
  - HAEMATEMESIS [None]
  - HIATUS HERNIA [None]
  - HYPOKALAEMIA [None]
  - OESOPHAGITIS [None]
  - VENTRICULAR ARRHYTHMIA [None]
  - VOMITING [None]
